FAERS Safety Report 10374139 (Version 2)
Quarter: 2014Q3

REPORT INFORMATION
  Report Type: Report from Study
  Country: CL (occurrence: CL)
  Receive Date: 20140811
  Receipt Date: 20140916
  Transmission Date: 20150326
  Serious: Yes (Other)
  Sender: FDA-Public Use
  Company Number: CL-ROCHE-1446975

PATIENT
  Age: 54 Year
  Sex: Female
  Weight: 72 kg

DRUGS (3)
  1. HERCEPTIN [Suspect]
     Active Substance: TRASTUZUMAB
     Indication: BREAST CANCER
     Route: 042
     Dates: start: 20130320, end: 20140220
  2. XELODA [Suspect]
     Active Substance: CAPECITABINE
     Indication: BREAST CANCER
     Dosage: 14-DAY-CYCLE
     Route: 048
     Dates: start: 20140626
  3. LOSARTAN [Concomitant]
     Active Substance: LOSARTAN
     Indication: HYPERTENSION
     Route: 048
     Dates: start: 2010

REACTIONS (2)
  - Anaemia [Not Recovered/Not Resolved]
  - Immunodeficiency [Unknown]
